FAERS Safety Report 5510691-X (Version None)
Quarter: 2007Q4

REPORT INFORMATION
  Report Type: 
  Country: None (occurrence: None)
  Receive Date: 20071107
  Receipt Date: 20071031
  Transmission Date: 20080405
  Serious: Yes (Other)
  Sender: FDA-Public Use
  Company Number: CHPA2007US11199

PATIENT
  Age: 39 Year
  Sex: Female
  Weight: 88.9 kg

DRUGS (1)
  1. THERAFLU VAPOR PATCH (NCH) (EUCALYPTUS OIL, CAMPHOR, MENTOL) PATCH [Suspect]
     Dosage: 1 DF, ONCE/SINGLE, TOPICAL
     Route: 061
     Dates: start: 20071023, end: 20071023

REACTIONS (2)
  - PNEUMONIA [None]
  - WRONG TECHNIQUE IN DRUG USAGE PROCESS [None]
